FAERS Safety Report 21523764 (Version 1)
Quarter: 2022Q4

REPORT INFORMATION
  Report Type: Spontaneous
  Country: GB (occurrence: GB)
  Receive Date: 20221029
  Receipt Date: 20221029
  Transmission Date: 20230113
  Serious: Yes (Life-Threatening, Hospitalization, Other)
  Sender: FDA-Public Use
  Company Number: GB-MHRA-MED-202210182229476270-GNSLY

PATIENT
  Age: 58 Year
  Sex: Female

DRUGS (1)
  1. ROPINIROLE [Suspect]
     Active Substance: ROPINIROLE
     Indication: Product used for unknown indication
     Route: 065

REACTIONS (4)
  - Paranoia [Recovered/Resolved with Sequelae]
  - Hallucination [Recovered/Resolved]
  - Insomnia [Recovered/Resolved]
  - Sleep deficit [Recovered/Resolved]
